FAERS Safety Report 4666470-9 (Version None)
Quarter: 2005Q2

REPORT INFORMATION
  Report Type: 
  Country: None (occurrence: None)
  Receive Date: 20050518
  Receipt Date: 20050504
  Transmission Date: 20051028
  Serious: Yes (Other)
  Sender: FDA-Public Use
  Company Number: 26614

PATIENT
  Age: 16 Year
  Sex: Male

DRUGS (5)
  1. MAXAIR [Suspect]
     Indication: ASTHMA
     Dosage: (400 MCG, 2 IN 1 TOTAL), RESPIRATORY (INHALATION)
     Route: 055
     Dates: start: 20050503, end: 20050503
  2. ALBUTEROL [Suspect]
     Indication: ASTHMA
     Dates: start: 20050502, end: 20050502
  3. PREDNISONE TAB [Suspect]
  4. BENADRYL [Suspect]
  5. CLARINEX [Suspect]

REACTIONS (1)
  - URTICARIA [None]
